FAERS Safety Report 13031837 (Version 6)
Quarter: 2017Q2

REPORT INFORMATION
  Report Type: Spontaneous
  Country: US (occurrence: US)
  Receive Date: 20161215
  Receipt Date: 20170530
  Transmission Date: 20170830
  Serious: Yes (Hospitalization, Other)
  Sender: FDA-Public Use
  Company Number: US-PFIZER INC-2016570915

PATIENT
  Age: 12 Year
  Sex: Female
  Weight: 54 kg

DRUGS (57)
  1. AMOXIL [Concomitant]
     Active Substance: AMOXICILLIN
     Dosage: 500 MG, 1X/DAY(GIVEN IN THE MORNING)
     Route: 048
  2. ADVAIR HFA [Concomitant]
     Active Substance: FLUTICASONE PROPIONATE\SALMETEROL XINAFOATE
     Dosage: 1 DF, 2X/DAY [FLUTICASONE PROPIONATE 100MCG]/[SALMETEROL XINAFOATE 50MCG]
     Route: 048
     Dates: start: 20161019, end: 20170130
  3. VITAMIN D3 [Concomitant]
     Active Substance: CHOLECALCIFEROL
     Dosage: 400 UNITS, 1X/DAY
     Route: 048
  4. SENNA S [Concomitant]
     Active Substance: DOCUSATE SODIUM\SENNA LEAF
     Dosage: UNK, (DOCUSATE SODIUM 50MG, SENNOSIDES 8.6MG)
     Route: 048
  5. DECADRON [Concomitant]
     Active Substance: DEXAMETHASONE
     Dosage: 0.5 MG, 2X/DAY (FOR 4 DAYS TAKE WITH A 4 MG TABLET FOR A TOTAL OF 4.5 MG)
     Route: 048
     Dates: start: 20170118, end: 20170122
  6. IMODIUM [Concomitant]
     Active Substance: LOPERAMIDE HYDROCHLORIDE
     Indication: DIARRHOEA
     Dosage: UNK(2CAPS AFTER FIRST LOOSE STOOL, THEN 1 CAP AFTER EACH LOOSE STOOL, BUT NO MORE THAN8CAPS PER DAY)
     Dates: start: 20170118, end: 20170412
  7. BIOGAIA [Concomitant]
     Active Substance: LACTOBACILLUS REUTERI
     Dosage: 1 DF, 1X/DAY
     Route: 048
  8. PULMICORT TURBUHALER [Concomitant]
     Active Substance: BUDESONIDE
     Indication: WHEEZING
     Dosage: UNK (0.5 MG/2 ML INHALATION SOLUTION)
  9. PULMICORT TURBUHALER [Concomitant]
     Active Substance: BUDESONIDE
     Indication: COUGH
  10. TYLENOL [Concomitant]
     Active Substance: ACETAMINOPHEN
     Dosage: 650 MG, AS NEEDED, (TAKE 2 TABLETS EVERY 6 HOURS, FOR UP TO 30 DOSES)
     Route: 048
     Dates: end: 20160525
  11. FAMOTIDINE. [Concomitant]
     Active Substance: FAMOTIDINE
     Dosage: 20 MG, UNK
  12. BOSULIF [Suspect]
     Active Substance: BOSUTINIB MONOHYDRATE
     Dosage: 500 MG, 1X/DAY
     Route: 048
     Dates: start: 20161201
  13. BOSULIF [Suspect]
     Active Substance: BOSUTINIB MONOHYDRATE
     Dosage: 500 MG, 1X/DAY
     Route: 048
     Dates: start: 201701, end: 20170120
  14. KEPPRA [Concomitant]
     Active Substance: LEVETIRACETAM
     Dosage: 750 MG, 2X/DAY (TAKE 2 TABLETS (1500 MG TOTAL))
     Route: 048
  15. MARINOL [Concomitant]
     Active Substance: DRONABINOL
     Dosage: 5 MG, 2X/DAY(BEFORE MEALS)
     Route: 048
     Dates: start: 20170118, end: 20170215
  16. EMLA [Concomitant]
     Active Substance: LIDOCAINE\PRILOCAINE
     Dosage: UNK [LIDOCAINE 2.5%]/[PRILOCAINE-2.5%] APPLY TO VENIPUNCTURE OR PORT SITE 30 MINUTES PRIOR TO ACCESS
     Dates: end: 20161019
  17. 6-MP [Concomitant]
     Active Substance: MERCAPTOPURINE
     Indication: ACUTE LYMPHOCYTIC LEUKAEMIA
     Dosage: 75 MG, DAILY
     Route: 048
  18. ZOFRAN ODT [Concomitant]
     Active Substance: ONDANSETRON HYDROCHLORIDE
     Indication: VOMITING
     Dosage: 8 MG, AS NEEDED (EVERY 8 HOURS, FOR UP TO 30 DOSES DISSOLVE TABLET ON TONGUE)
     Route: 048
     Dates: start: 20161105, end: 20170121
  19. LOPERAMIDE [Concomitant]
     Active Substance: LOPERAMIDE
     Dosage: 2 MG, UNK
  20. MERCAPTOPURINE. [Concomitant]
     Active Substance: MERCAPTOPURINE
     Dosage: 50 MG, UNK
     Route: 048
  21. PROCHLORPERAZINE. [Concomitant]
     Active Substance: PROCHLORPERAZINE
     Dosage: 10 MG, UNK
  22. DEXAMETHASONE. [Concomitant]
     Active Substance: DEXAMETHASONE
     Dosage: 4 MG, 2X/DAY, (5 DAYS)
  23. KEPPRA [Concomitant]
     Active Substance: LEVETIRACETAM
     Dosage: 1500 MG, 2X/DAY, (2 TABLETS )
     Route: 048
     Dates: end: 20161222
  24. MARINOL [Concomitant]
     Active Substance: DRONABINOL
     Dosage: 5 MG, 2X/DAY(EVERY 12 HOURS) BEFORE MEALS
     Route: 048
  25. AMOXIL [Concomitant]
     Active Substance: AMOXICILLIN
     Dosage: 500 MG, 1X/DAY(GIVEN IN THE MORNING)
     Route: 048
     Dates: start: 20161129, end: 20170217
  26. DECADRON [Concomitant]
     Active Substance: DEXAMETHASONE
     Dosage: 4 MG, 2X/DAY (TAKE WITH 0.5 MG FOR A TOTAL OF 4.5 MG)
     Route: 048
  27. TYLENOL [Concomitant]
     Active Substance: ACETAMINOPHEN
     Indication: PAIN
     Dosage: 325 MG, AS NEEDED (TAKE 2 TABLETS (650 MG TOTAL) BY MOUTH EVERY 6 HOURS AS NEEDED FOR UP TO 30DOSES)
     Route: 048
  28. ZOFRAN [Concomitant]
     Active Substance: ONDANSETRON HYDROCHLORIDE
     Dosage: UNK
  29. COUMADIN [Concomitant]
     Active Substance: WARFARIN SODIUM
     Dosage: 22 MG, 1X/DAY
     Route: 048
     Dates: start: 20170118, end: 20170215
  30. NEURONTIN [Concomitant]
     Active Substance: GABAPENTIN
     Dosage: 600 MG, 3X/DAY
     Route: 048
     Dates: start: 20161129, end: 20170301
  31. ADVAIR HFA [Concomitant]
     Active Substance: FLUTICASONE PROPIONATE\SALMETEROL XINAFOATE
     Dosage: 1 DF, 2X/DAY [FLUTICASONE PROPIONATE 100MCG]/[SALMETEROL XINAFOATE 50MCG]
     Route: 048
  32. EMLA [Concomitant]
     Active Substance: LIDOCAINE\PRILOCAINE
     Dosage: UNK [LIDOCAINE 2.5%]/[PRILOCAINE-2.5%] APPLY TO VENIPUNCTURE OR PORT SITE 30 MINUTES PRIOR TO ACCESS
  33. VINCRISTINE [Concomitant]
     Active Substance: VINCRISTINE
     Indication: ACUTE LYMPHOCYTIC LEUKAEMIA
     Dosage: 1 MG, UNK
     Route: 042
  34. METHOTREXATE. [Concomitant]
     Active Substance: METHOTREXATE
     Indication: ACUTE LYMPHOCYTIC LEUKAEMIA
     Dosage: 15 MG, WEEKLY (6 TABLETS, 1 TIME A WEEK FOR 3 DAYS)
     Route: 048
     Dates: start: 20170118, end: 20170121
  35. DEXAMETHASONE. [Concomitant]
     Active Substance: DEXAMETHASONE
     Dosage: 0.5 MG, UNK
     Route: 048
  36. PEPCID [Concomitant]
     Active Substance: FAMOTIDINE
     Dosage: 20 MG, 2X/DAY (TAKE 1 TABLET BY MOUTH 2 TIMES A DAY FOR 7 DAYS WHEN ON STEROIDS)
     Route: 048
     Dates: start: 20161220, end: 20170118
  37. NEURONTIN [Concomitant]
     Active Substance: GABAPENTIN
     Dosage: 600 MG, 3X/DAY
     Route: 048
  38. ASPIRIN. [Concomitant]
     Active Substance: ASPIRIN
     Dosage: 81 MG, ON SUNDAY AND WEDNESDAY
     Route: 048
  39. DECADRON [Concomitant]
     Active Substance: DEXAMETHASONE
     Dosage: 0.5 MG, 2X/DAY (FOR 4 DAYS TAKE WITH A 4 MG TABLET FOR A TOTAL OF 4.5 MG)
     Route: 048
  40. ZOFRAN ODT [Concomitant]
     Active Substance: ONDANSETRON HYDROCHLORIDE
     Indication: NAUSEA
     Dosage: 8 MG, AS NEEDED (EVERY 8 HOURS, FOR UP TO 30 DOSES DISSOLVE TABLET ON TONGUE)
     Route: 048
  41. BENADRYL [Concomitant]
     Active Substance: DIPHENHYDRAMINE HYDROCHLORIDE
     Dosage: UNK
  42. COUMADIN [Concomitant]
     Active Substance: WARFARIN SODIUM
     Dosage: 5.25 MG, 1X/DAY(0.875 TABLETS (5.25 MG TOTAL))
     Route: 048
  43. PULMICORT TURBUHALER [Concomitant]
     Active Substance: BUDESONIDE
     Indication: DYSPNOEA
     Dosage: 1 UNIT DOSE, AS NEEDED (BY NEBULIZATION 2 TIMES A DAY AS NEEDED)
     Route: 055
  44. COMPAZINE [Concomitant]
     Active Substance: PROCHLORPERAZINE MALEATE
     Indication: NAUSEA
     Dosage: 10 MG, AS NEEDED (EVERY 8 HOURS, FOR UP TO 30 DOSES)
     Route: 048
  45. COMPAZINE [Concomitant]
     Active Substance: PROCHLORPERAZINE MALEATE
     Indication: VOMITING
     Dosage: 10 MG, AS NEEDED (EVERY 8 HOURS, FOR UP TO 30 DOSES)
     Route: 048
     Dates: start: 20170118
  46. BOSULIF [Suspect]
     Active Substance: BOSUTINIB MONOHYDRATE
     Indication: ACUTE LYMPHOCYTIC LEUKAEMIA
     Dosage: 500 MG, 1X/DAY (IN THE EVENINGS)
     Route: 048
     Dates: start: 20161110
  47. COUMADIN [Concomitant]
     Active Substance: WARFARIN SODIUM
     Dosage: 10 MG, 1X/DAY (TAKE 1 TABLET (10 MG TOTAL) )
     Route: 048
  48. PURINETHOL [Concomitant]
     Active Substance: MERCAPTOPURINE
     Dosage: 800 MG, WEEKLY(125 (2 AND HALF) TABS DAILY X 4 DAYS AND 100 MG (2 TABS X 3 DAYS)
  49. PURINETHOL [Concomitant]
     Active Substance: MERCAPTOPURINE
     Dosage: 75 MG, 1X/DAY (TAKE 1.5 TABLETS (75 MG TOTAL))
     Route: 048
     Dates: start: 20170118, end: 20170217
  50. DILAUDID [Concomitant]
     Active Substance: HYDROMORPHONE HYDROCHLORIDE
     Dosage: 2 MG, AS NEEDED(EVERY 6 HOURS AS NEEDED)
     Route: 048
  51. VITAMIN D3 [Concomitant]
     Active Substance: CHOLECALCIFEROL
     Dosage: 400 IU, UNK
  52. SENNA S [Concomitant]
     Active Substance: DOCUSATE SODIUM\SENNA LEAF
     Dosage: ONE TIME A DAY AS NEEDED (SENNOSIDES 8.6 MG/ DOCUSATE SODIUM 50MG)
     Route: 048
  53. METHOTREXATE. [Concomitant]
     Active Substance: METHOTREXATE
     Dosage: 2.5 MG, UNK
  54. DECADRON [Concomitant]
     Active Substance: DEXAMETHASONE
     Dosage: 4 MG, 2X/DAY (TAKE WITH 0.5 MG FOR A TOTAL OF 4.5 MG)
     Route: 048
     Dates: start: 20170118, end: 20170217
  55. DURAGESIC-12 [Concomitant]
     Dosage: 12 UG, UNK (APPLY 1 PATCH (12 MCG TOTAL) TO THE SKIN EVERY 72 HOURS)
     Route: 062
  56. DURAGESIC-12 [Concomitant]
     Dosage: 12 UG, UNK (APPLY 1 PATCH (12 MCG TOTAL) TO THE SKIN EVERY 72 HOURS)
     Route: 062
     Dates: start: 20161201, end: 20170215
  57. DRONABINOL. [Concomitant]
     Active Substance: DRONABINOL
     Dosage: 5 MG, UNK

REACTIONS (19)
  - Diarrhoea [Unknown]
  - Lung infection [Unknown]
  - Decreased appetite [Unknown]
  - Pain [Recovered/Resolved]
  - Dehydration [Recovered/Resolved]
  - Hyperglycaemia [Unknown]
  - Aspartate aminotransferase increased [Unknown]
  - Blood corticotrophin decreased [Unknown]
  - Abdominal pain [Recovered/Resolved]
  - Vomiting [Recovered/Resolved]
  - Haematocrit decreased [Unknown]
  - Malaise [Unknown]
  - Red blood cell count decreased [Unknown]
  - Alanine aminotransferase increased [Unknown]
  - Haemoglobin decreased [Unknown]
  - Product use issue [Unknown]
  - Nausea [Recovered/Resolved]
  - Dizziness [Unknown]
  - Blood bilirubin increased [Unknown]

NARRATIVE: CASE EVENT DATE: 20161110
